FAERS Safety Report 20526395 (Version 1)
Quarter: 2022Q1

REPORT INFORMATION
  Report Type: Spontaneous
  Country: US (occurrence: US)
  Receive Date: 20220228
  Receipt Date: 20220228
  Transmission Date: 20220424
  Serious: No
  Sender: FDA-Public Use
  Company Number: US-009507513-2202USA008108

PATIENT
  Age: 72 Year
  Sex: Female

DRUGS (2)
  1. KEYTRUDA [Suspect]
     Active Substance: PEMBROLIZUMAB
     Indication: Endometrial cancer
     Dosage: UNK
  2. LENVATINIB MESYLATE [Suspect]
     Active Substance: LENVATINIB MESYLATE
     Indication: Endometrial cancer
     Dosage: 20 MILLIGRAM
     Route: 048
     Dates: start: 20220218

REACTIONS (6)
  - Urinary tract discomfort [Recovered/Resolved]
  - Facial pain [Recovered/Resolved]
  - Hypertension [Recovered/Resolved]
  - Headache [Recovered/Resolved]
  - Back pain [Recovering/Resolving]
  - Renal disorder [Recovered/Resolved]

NARRATIVE: CASE EVENT DATE: 20220219
